FAERS Safety Report 8865527 (Version 1)
Quarter: 2012Q4

REPORT INFORMATION
  Report Type: 
  Country: US (occurrence: US)
  Receive Date: 20121024
  Receipt Date: 20121024
  Transmission Date: 20130627
  Serious: No
  Sender: FDA-Public Use
  Company Number: US-AMGEN-USASP2012003289

PATIENT
  Age: 73 Year
  Sex: Female
  Weight: 95.24 kg

DRUGS (6)
  1. ENBREL [Suspect]
     Indication: PRODUCT USED FOR UNKNOWN INDICATION
     Dosage: 25 mg, 2 times/wk
     Route: 058
  2. LOTREL [Concomitant]
     Dosage: 10 mg, UNK
  3. PINDOLOL [Concomitant]
     Dosage: 5 mg, UNK
  4. LASIX                              /00032601/ [Concomitant]
     Dosage: 20 mg, UNK
  5. DOXAZOSIN [Concomitant]
     Dosage: 2 mg, UNK
  6. MULTIVITAMIN                       /00097801/ [Concomitant]

REACTIONS (1)
  - Herpes zoster [Recovered/Resolved]
